FAERS Safety Report 14100719 (Version 1)
Quarter: 2017Q4

REPORT INFORMATION
  Report Type: Spontaneous
  Country: CA (occurrence: CA)
  Receive Date: 20171018
  Receipt Date: 20171018
  Transmission Date: 20180321
  Serious: Yes (Hospitalization)
  Sender: FDA-Public Use
  Company Number: CA-OTSUKA-2017_022031

PATIENT

DRUGS (1)
  1. ABILIFY MAINTENA [Suspect]
     Active Substance: ARIPIPRAZOLE
     Indication: PRODUCT USED FOR UNKNOWN INDICATION
     Dosage: UNK
     Route: 065

REACTIONS (9)
  - Fatigue [Unknown]
  - Vomiting [Unknown]
  - Legal problem [Unknown]
  - Hospitalisation [Unknown]
  - Rash [Unknown]
  - Arthralgia [Unknown]
  - Abnormal dreams [Unknown]
  - Asthenia [Unknown]
  - Sleep disorder [Unknown]
